FAERS Safety Report 7027644-5 (Version None)
Quarter: 2010Q4

REPORT INFORMATION
  Report Type: 
  Country: None (occurrence: None)
  Receive Date: 20101004
  Receipt Date: 20100927
  Transmission Date: 20110411
  Serious: Yes (Hospitalization)
  Sender: FDA-Public Use
  Company Number: US-US-EMD SERONO, INC.-7013565

PATIENT
  Sex: Female
  Weight: 97 kg

DRUGS (3)
  1. REBIF [Suspect]
     Indication: MULTIPLE SCLEROSIS
     Route: 058
     Dates: start: 20100727, end: 20100802
  2. REBIF [Suspect]
     Route: 058
     Dates: start: 20100101
  3. ATENOLOL [Concomitant]
     Indication: HYPOTENSION

REACTIONS (5)
  - BLOOD POTASSIUM DECREASED [None]
  - DEPRESSION [None]
  - HEART RATE DECREASED [None]
  - INJECTION SITE ERYTHEMA [None]
  - MULTIPLE SCLEROSIS RELAPSE [None]
